FAERS Safety Report 9436815 (Version 1)
Quarter: 2013Q3

REPORT INFORMATION
  Report Type: Spontaneous
  Country: US (occurrence: US)
  Receive Date: 20130802
  Receipt Date: 20130802
  Transmission Date: 20140515
  Serious: No
  Sender: FDA-Public Use
  Company Number: US-PFIZER INC-2013221963

PATIENT
  Age: 81 Year
  Sex: Female
  Weight: 56.69 kg

DRUGS (1)
  1. TOVIAZ [Suspect]
     Indication: URINARY INCONTINENCE
     Dosage: 4 MG, 1X/DAY
     Dates: start: 2013

REACTIONS (2)
  - Drug ineffective [Unknown]
  - Urinary incontinence [Unknown]
